FAERS Safety Report 9774262 (Version 2)
Quarter: 2014Q1

REPORT INFORMATION
  Report Type: Spontaneous
  Country: MX (occurrence: MX)
  Receive Date: 20131220
  Receipt Date: 20140219
  Transmission Date: 20141002
  Serious: Yes (Other)
  Sender: FDA-Public Use
  Company Number: MX-JNJFOC-20131204670

PATIENT
  Sex: Male
  Weight: 80 kg

DRUGS (1)
  1. LISTERINE WHITENING BLANQUEA Y FORTALECE [Suspect]
     Indication: DENTAL CARE
     Route: 002

REACTIONS (3)
  - Anosmia [Not Recovered/Not Resolved]
  - Ageusia [Not Recovered/Not Resolved]
  - Intentional drug misuse [Not Recovered/Not Resolved]
